FAERS Safety Report 8067311-2 (Version None)
Quarter: 2012Q1

REPORT INFORMATION
  Report Type: 
  Country: None (occurrence: None)
  Receive Date: 20120124
  Receipt Date: 20120120
  Transmission Date: 20120608
  Serious: Yes (Hospitalization)
  Sender: FDA-Public Use
  Company Number: US-GLAXOSMITHKLINE-B0717851A

PATIENT
  Age: 72 Year
  Sex: Female
  Weight: 87.7 kg

DRUGS (9)
  1. AVANDIA [Suspect]
     Indication: DIABETES MELLITUS
     Route: 048
     Dates: start: 20010101, end: 20040101
  2. GLYBURIDE [Concomitant]
  3. CELEBREX [Concomitant]
  4. ALLEGRA [Concomitant]
  5. FLEXERIL [Concomitant]
  6. INSULIN [Concomitant]
  7. DIOVAN [Concomitant]
  8. CALAN [Concomitant]
  9. FLOVENT [Concomitant]

REACTIONS (4)
  - CORONARY ARTERY DISEASE [None]
  - CARDIAC DISORDER [None]
  - DYSPNOEA [None]
  - SURGERY [None]
